FAERS Safety Report 4303731-7 (Version None)
Quarter: 2004Q1

REPORT INFORMATION
  Report Type: 
  Country: None (occurrence: None)
  Receive Date: 20040219
  Receipt Date: 20040202
  Transmission Date: 20041129
  Serious: Yes (Life-Threatening, Hospitalization, Other)
  Sender: FDA-Public Use
  Company Number: 223323

PATIENT
  Age: 65 Year
  Sex: Male
  Weight: 86 kg

DRUGS (40)
  1. NOVOSEVEN [Suspect]
     Indication: CEREBRAL HAEMORRHAGE
     Dosage: 1 DOSE, SINGLE; INTRAVENOUS
     Route: 042
     Dates: start: 20021209, end: 20021209
  2. BELOC-ZOC MITE (METOPROLOL SUCCINATE) [Concomitant]
  3. RAMIPRIL [Concomitant]
  4. PANTOZOL (PANTOPRAZOLE SODIUM) [Concomitant]
  5. DEXAMETHASONE [Concomitant]
  6. BROMUC (ACETYLCYSTEINE) [Concomitant]
  7. EBRANTIL (URAPIDIL) [Concomitant]
  8. FENTANYL [Concomitant]
  9. RANITIDINE HCL [Concomitant]
  10. NITROGLYCERIN [Concomitant]
  11. NEPRESOL (DIHYDRALAZINE SULFATE) [Concomitant]
  12. PROPOFOL [Concomitant]
  13. CAPTOPRIL [Concomitant]
  14. LOPRESSOR [Concomitant]
  15. DIPIDOLOR (PIRITRAMIDE) [Concomitant]
  16. VOMEX A ^ENDOPHARM^ (DIMENHYDRINATE) [Concomitant]
  17. LASIX [Concomitant]
  18. ACTRAPID HUMAN [Concomitant]
  19. INSULIN [Concomitant]
  20. PIPERACILLIN [Concomitant]
  21. SOBELIN ^BASOTHERM^ (CLINDAMYCIN PHOSPHATE) [Concomitant]
  22. FRAGMIN [Concomitant]
  23. PASPERTIN (METOCLOPRAMIDE HYDROCHLORIDE) [Concomitant]
  24. NORVASC [Concomitant]
  25. MIDAZOLAM HCL [Concomitant]
  26. ATROPINE SULFATE [Concomitant]
  27. OSMOFUNDIN (MANNITOL, SODIUM ACETATE TRIHYDRATE, SODIUM CHLORIDE) [Concomitant]
  28. SOLU-DECORTIN-H (PREDNISOLONE SODIUM SUCCINATE) [Concomitant]
  29. MUCOSOLVAN (AMBROXOL HYDROCHLORIDE) [Concomitant]
  30. ESIDRIX [Concomitant]
  31. ENALAPRIL MALEATE [Concomitant]
  32. NOVALDIN INJ [Concomitant]
  33. ESMERON (ROCURONIUM BROMIDE) [Concomitant]
  34. ETOMIDATE (ETOMIDATE) [Concomitant]
  35. NOREPINEPHRINE BITARTRATE [Concomitant]
  36. PSYQUIL (TRIFLUPROMAZINE) [Concomitant]
  37. CATA[RESAM (CLONIDINE) [Concomitant]
  38. ULCOGANT (SUCRALFATE) [Concomitant]
  39. ACETYLSALICYLIC ACID [Concomitant]
  40. ROHYPNOL (FLUNITRAZEPAM) [Concomitant]

REACTIONS (5)
  - BRAIN DAMAGE [None]
  - BRAIN OEDEMA [None]
  - HEART RATE DECREASED [None]
  - ISCHAEMIC STROKE [None]
  - PNEUMONIA [None]
